FAERS Safety Report 5400301-4 (Version None)
Quarter: 2007Q3

REPORT INFORMATION
  Report Type: 
  Country: None (occurrence: None)
  Receive Date: 20070730
  Receipt Date: 20070719
  Transmission Date: 20080115
  Serious: Yes (Hospitalization)
  Sender: FDA-Public Use
  Company Number: LV-ROCHE-508085

PATIENT
  Age: 39 Year
  Sex: Female

DRUGS (1)
  1. BONIVA [Suspect]
     Dosage: STOP DATE: DEC.
     Route: 048
     Dates: start: 20061001

REACTIONS (1)
  - KIDNEY TRANSPLANT REJECTION [None]
